FAERS Safety Report 9404634 (Version 1)
Quarter: 2013Q3

REPORT INFORMATION
  Report Type: Spontaneous
  Country: US (occurrence: None)
  Receive Date: 20130716
  Receipt Date: 20130716
  Transmission Date: 20140515
  Serious: Yes (Hospitalization)
  Sender: FDA-Public Use
  Company Number: None

PATIENT
  Age: 81 Year
  Sex: Male
  Weight: 114.4 kg

DRUGS (1)
  1. NITROGLYCERIN [Suspect]
     Indication: ANGINA PECTORIS
     Dosage: 1 TAB, PRN, SUBLINGUAL
     Route: 060
     Dates: start: 20130507, end: 20130507

REACTIONS (2)
  - Syncope [None]
  - Hypotension [None]
